FAERS Safety Report 4742065-3 (Version None)
Quarter: 2005Q3

REPORT INFORMATION
  Report Type: 
  Country: None (occurrence: None)
  Receive Date: 20050810
  Receipt Date: 20050728
  Transmission Date: 20060218
  Serious: Yes (Other)
  Sender: FDA-Public Use
  Company Number: 2005107869

PATIENT
  Sex: Male
  Weight: 200 kg

DRUGS (2)
  1. ACTIFED COLD AND SINUS (PARACETAMOL, PSEUDOEPHEDRINE, CHLORPHENIRAMINE [Suspect]
     Indication: SINUS HEADACHE
     Dosage: ONE CAPLET DAILY, ANOTHER AN HOUR LATER, ORAL
     Route: 048
  2. ATORVASTATIN CALCIUM [Concomitant]

REACTIONS (1)
  - PIGMENTATION DISORDER [None]
